FAERS Safety Report 4959938-9 (Version None)
Quarter: 2006Q1

REPORT INFORMATION
  Report Type: 
  Country: None (occurrence: None)
  Receive Date: 20060331
  Receipt Date: 20051121
  Transmission Date: 20060701
  Serious: Yes (Disabling)
  Sender: FDA-Public Use
  Company Number: US-MERCK-0511USA03606

PATIENT
  Age: 67 Year
  Sex: Male
  Weight: 102 kg

DRUGS (1)
  1. VIOXX [Suspect]
     Indication: ARTHRITIS
     Route: 048
     Dates: start: 20010101, end: 20050101

REACTIONS (4)
  - ANXIETY [None]
  - BLOOD PRESSURE ABNORMAL [None]
  - HEART RATE DECREASED [None]
  - PRESCRIBED OVERDOSE [None]
